FAERS Safety Report 6074719-3 (Version None)
Quarter: 2009Q1

REPORT INFORMATION
  Report Type: 
  Country: None (occurrence: None)
  Receive Date: 20090212
  Receipt Date: 20090204
  Transmission Date: 20090719
  Serious: Yes (Hospitalization, Other)
  Sender: FDA-Public Use
  Company Number: US-JNJFOC-20081106437

PATIENT
  Sex: Female
  Weight: 90.27 kg

DRUGS (9)
  1. DOXIL [Suspect]
     Dosage: CYCLE 2
     Route: 042
  2. DOXIL [Suspect]
     Indication: OVARIAN CANCER RECURRENT
     Dosage: 40MG/M2. EVERY 28 DAYS. CYCLE 1
     Route: 042
  3. EMEND [Concomitant]
     Dosage: GIVEN DAY 2 AND 3
     Route: 048
  4. EMEND [Concomitant]
     Indication: NAUSEA
     Dosage: GIVEN DAY 1
     Route: 048
  5. DEXAMETHASONE TAB [Concomitant]
     Route: 042
  6. DEXAMETHASONE TAB [Concomitant]
     Indication: PREMEDICATION
     Dosage: INTRAVENOUS
     Route: 042
  7. DEXAMETHASONE TAB [Concomitant]
     Indication: NAUSEA
     Dosage: GIVEN DAY 2, 3, 4. ORAL
     Route: 042
  8. ALOXI [Concomitant]
     Route: 042
  9. ALOXI [Concomitant]
     Indication: PREMEDICATION
     Route: 042

REACTIONS (4)
  - BACK PAIN [None]
  - INSOMNIA [None]
  - NAUSEA [None]
  - VOMITING [None]
